FAERS Safety Report 24525697 (Version 1)
Quarter: 2024Q4

REPORT INFORMATION
  Report Type: Other
  Country: US (occurrence: US)
  Receive Date: 20241020
  Receipt Date: 20241020
  Transmission Date: 20250114
  Serious: No
  Sender: MERCK KGAA
  Company Number: US-Merck Healthcare KGaA-2024053004

PATIENT
  Age: 6 Month
  Sex: Male

DRUGS (2)
  1. LEVOTHYROXINE [Suspect]
     Active Substance: LEVOTHYROXINE
     Indication: Hereditary disorder
  2. PROPYLTHIOURACIL [Concomitant]
     Active Substance: PROPYLTHIOURACIL
     Indication: Hereditary disorder

REACTIONS (1)
  - Off label use [Unknown]
